FAERS Safety Report 25952706 (Version 1)
Quarter: 2025Q4

REPORT INFORMATION
  Report Type: Spontaneous
  Country: US (occurrence: US)
  Receive Date: 20251023
  Receipt Date: 20251023
  Transmission Date: 20260119
  Serious: No
  Sender: MYLAN
  Company Number: US-MYLANLABS-2025M1086772

PATIENT
  Age: 65 Year
  Sex: Female

DRUGS (1)
  1. BREYNA [Suspect]
     Active Substance: BUDESONIDE\FORMOTEROL FUMARATE
     Indication: Product used for unknown indication
     Dosage: 320 PER 9 MICROGRAM, BID (2 PUFFS IN THE MORNING AND 2 PUFFS IN THE EVENING)
     Dates: start: 202509

REACTIONS (4)
  - Expired product administered [Unknown]
  - Device delivery system issue [Unknown]
  - Device breakage [Unknown]
  - Device malfunction [Unknown]

NARRATIVE: CASE EVENT DATE: 20250901
